FAERS Safety Report 18556526 (Version 3)
Quarter: 2022Q2

REPORT INFORMATION
  Report Type: Report from Study
  Country: US (occurrence: US)
  Receive Date: 20201128
  Receipt Date: 20220429
  Transmission Date: 20220720
  Serious: No
  Sender: FDA-Public Use
  Company Number: US-TAKEDA-2020TUS051976

PATIENT
  Age: 38 Year
  Sex: Female
  Weight: 102.04 kg

DRUGS (4)
  1. FIRAZYR [Suspect]
     Active Substance: ICATIBANT ACETATE
     Indication: Product used for unknown indication
     Dosage: 3 DOSAGE FORM, TID
     Route: 058
  2. FIRAZYR [Suspect]
     Active Substance: ICATIBANT ACETATE
     Indication: Product used for unknown indication
     Dosage: 3 DOSAGE FORM, TID
     Route: 058
  3. LANADELUMAB [Suspect]
     Active Substance: LANADELUMAB
     Indication: Hereditary angioedema
     Dosage: 300 MILLIGRAM, Q2WEEKS
     Route: 058
  4. LANADELUMAB [Suspect]
     Active Substance: LANADELUMAB
     Indication: Immune system disorder

REACTIONS (3)
  - Weight increased [Unknown]
  - Exposure to SARS-CoV-2 [Unknown]
  - Product container issue [Unknown]

NARRATIVE: CASE EVENT DATE: 20210104
